FAERS Safety Report 13177298 (Version 1)
Quarter: 2017Q1

REPORT INFORMATION
  Report Type: Spontaneous
  Country: US (occurrence: US)
  Receive Date: 20170201
  Receipt Date: 20170201
  Transmission Date: 20170428
  Serious: Yes (Other)
  Sender: FDA-Public Use
  Company Number: US-EXELIXIS-CABO-13003826

PATIENT
  Sex: Male
  Weight: 78.63 kg

DRUGS (2)
  1. COMETRIQ [Suspect]
     Active Substance: CABOZANTINIB S-MALATE
     Dosage: 140 MG, QD
     Route: 048
     Dates: start: 20151008, end: 201607
  2. COMETRIQ [Suspect]
     Active Substance: CABOZANTINIB S-MALATE
     Indication: THYROID CANCER
     Dosage: 140 MG, QD
     Route: 048
     Dates: start: 20131206, end: 20150927

REACTIONS (8)
  - Fatigue [Not Recovered/Not Resolved]
  - Metastases to lung [Unknown]
  - Hypertension [Unknown]
  - Laryngitis [Not Recovered/Not Resolved]
  - Abdominal pain upper [Unknown]
  - Dysphonia [Unknown]
  - Diarrhoea [Unknown]
  - Drug ineffective [Unknown]
